FAERS Safety Report 17946341 (Version 2)
Quarter: 2020Q3

REPORT INFORMATION
  Report Type: Spontaneous
  Country: FR (occurrence: FR)
  Receive Date: 20200625
  Receipt Date: 20200928
  Transmission Date: 20201103
  Serious: Yes (Hospitalization)
  Sender: FDA-Public Use
  Company Number: FR-PFIZER INC-2020244053

PATIENT
  Age: 68 Year
  Sex: Female
  Weight: 60 kg

DRUGS (4)
  1. GEMCITABINE HYDROCHLORIDE. [Suspect]
     Active Substance: GEMCITABINE HYDROCHLORIDE
     Indication: ADENOCARCINOMA PANCREAS
     Dosage: UNK
     Route: 042
     Dates: start: 201609, end: 20170424
  2. IBRUTINIB [Suspect]
     Active Substance: IBRUTINIB
     Indication: ADENOCARCINOMA PANCREAS
     Dosage: UNK
     Route: 048
     Dates: start: 201609, end: 20170428
  3. IBRANCE [Suspect]
     Active Substance: PALBOCICLIB
     Indication: ADENOCARCINOMA PANCREAS
     Dosage: UNK
     Route: 048
     Dates: start: 201609, end: 20170428
  4. ABRAXANE [Suspect]
     Active Substance: PACLITAXEL
     Indication: ADENOCARCINOMA PANCREAS
     Dosage: UNK
     Route: 042
     Dates: start: 201609, end: 20170428

REACTIONS (3)
  - Pleural effusion [Recovered/Resolved]
  - Pericardial effusion [Recovered/Resolved]
  - Capillary permeability increased [Recovered/Resolved]

NARRATIVE: CASE EVENT DATE: 20170509
